FAERS Safety Report 14560609 (Version 1)
Quarter: 2018Q1

REPORT INFORMATION
  Report Type: Spontaneous
  Country: US (occurrence: US)
  Receive Date: 20180222
  Receipt Date: 20180222
  Transmission Date: 20180509
  Serious: No
  Sender: FDA-Public Use
  Company Number: US-ASTRAZENECA-2018SE20229

PATIENT
  Age: 25577 Day
  Sex: Male
  Weight: 110.2 kg

DRUGS (1)
  1. DALIRESP [Suspect]
     Active Substance: ROFLUMILAST
     Indication: PRODUCTIVE COUGH
     Route: 048

REACTIONS (11)
  - Influenza like illness [Unknown]
  - Headache [Unknown]
  - Autoscopy [Unknown]
  - Off label use [Unknown]
  - Decreased appetite [Unknown]
  - Extra dose administered [Unknown]
  - Nausea [Unknown]
  - Back pain [Unknown]
  - Dizziness [Unknown]
  - Product use in unapproved indication [Unknown]
  - Insomnia [Unknown]

NARRATIVE: CASE EVENT DATE: 20180212
